FAERS Safety Report 6932089-X (Version None)
Quarter: 2010Q3

REPORT INFORMATION
  Report Type: 
  Country: None (occurrence: None)
  Receive Date: 20100819
  Receipt Date: 20100806
  Transmission Date: 20110219
  Serious: Yes (Hospitalization)
  Sender: FDA-Public Use
  Company Number: A0862617A

PATIENT
  Age: 61 Year
  Sex: Male
  Weight: 89.5 kg

DRUGS (9)
  1. AVANDIA [Suspect]
     Route: 048
  2. PROTONIX [Concomitant]
  3. CRESTOR [Concomitant]
  4. TRICOR [Concomitant]
  5. PLAVIX [Concomitant]
  6. METFORMIN HCL [Concomitant]
  7. LEXAPRO [Concomitant]
  8. LUNESTA [Concomitant]
  9. LORAZEPAM [Concomitant]

REACTIONS (2)
  - CONDITION AGGRAVATED [None]
  - MYOCARDIAL INFARCTION [None]
